FAERS Safety Report 8128687-0 (Version None)
Quarter: 2012Q1

REPORT INFORMATION
  Report Type: 
  Country: None (occurrence: None)
  Receive Date: 20120210
  Receipt Date: 20101222
  Transmission Date: 20120608
  Serious: No
  Sender: FDA-Public Use
  Company Number: US-BRISTOL-MYERS SQUIBB COMPANY-15456593

PATIENT
  Age: 63 Year
  Sex: Female

DRUGS (1)
  1. ORENCIA [Suspect]
     Dosage: 29SEP06:250MG;06JUN07:DOSE INCREASED TO 500MG 07JAN09:750MG; RECENT INF:26NOV2010
     Dates: start: 20060929

REACTIONS (4)
  - PSORIASIS [None]
  - SKIN FISSURES [None]
  - SEBORRHOEIC DERMATITIS [None]
  - DANDRUFF [None]
